FAERS Safety Report 4630476-6 (Version None)
Quarter: 2005Q2

REPORT INFORMATION
  Report Type: 
  Country: None (occurrence: None)
  Receive Date: 20050408
  Receipt Date: 20050330
  Transmission Date: 20051028
  Serious: Yes (Other)
  Sender: FDA-Public Use
  Company Number: PT-JNJFOC-20050401017

PATIENT
  Sex: Female

DRUGS (3)
  1. TRAMADOL HCL [Suspect]
     Route: 049
  2. ACABEL RAPID [Suspect]
     Route: 049
  3. OMEPRAZOLE [Concomitant]
     Route: 049

REACTIONS (5)
  - ABDOMINAL DISTENSION [None]
  - CONSTIPATION [None]
  - DYSPNOEA [None]
  - FACE OEDEMA [None]
  - PAIN [None]
